FAERS Safety Report 24090769 (Version 3)
Quarter: 2025Q3

REPORT INFORMATION
  Report Type: Report from Study
  Country: US (occurrence: US)
  Receive Date: 20240715
  Receipt Date: 20250806
  Transmission Date: 20251021
  Serious: Yes (Hospitalization)
  Sender: NOVARTIS
  Company Number: US-002147023-NVSC2024US144925

PATIENT
  Sex: Female
  Weight: 78 kg

DRUGS (2)
  1. FABHALTA [Suspect]
     Active Substance: IPTACOPAN HYDROCHLORIDE
     Indication: Paroxysmal nocturnal haemoglobinuria
     Dosage: 200 MG, BID
     Route: 048
     Dates: start: 20240619
  2. FABHALTA [Suspect]
     Active Substance: IPTACOPAN HYDROCHLORIDE
     Dosage: 200 MG, BID
     Route: 048
     Dates: start: 202407

REACTIONS (5)
  - Cerebral thrombosis [Recovering/Resolving]
  - Illness [Not Recovered/Not Resolved]
  - Secretion discharge [Not Recovered/Not Resolved]
  - Cough [Not Recovered/Not Resolved]
  - Weight increased [Not Recovered/Not Resolved]
